FAERS Safety Report 8065534-X (Version None)
Quarter: 2011Q4

REPORT INFORMATION
  Report Type: 
  Country: None (occurrence: None)
  Receive Date: 20111221
  Receipt Date: 20110329
  Transmission Date: 20120403
  Serious: Yes (Other)
  Sender: FDA-Public Use
  Company Number: PHHY2011US02097

PATIENT
  Age: 19 Year
  Sex: Female
  Weight: 49.9 kg

DRUGS (3)
  1. DILAUDID [Concomitant]
  2. EXJADE [Suspect]
     Indication: IRON OVERLOAD
     Dosage: 1000 MG, QD, ORAL
     Route: 048
     Dates: start: 20100721, end: 20110118
  3. FOLIC ACID [Concomitant]

REACTIONS (2)
  - VISION BLURRED [None]
  - SICKLE CELL ANAEMIA WITH CRISIS [None]
